FAERS Safety Report 13062787 (Version 5)
Quarter: 2017Q2

REPORT INFORMATION
  Report Type: Report from Study
  Country: LB (occurrence: LB)
  Receive Date: 20161226
  Receipt Date: 20170623
  Transmission Date: 20170830
  Serious: Yes (Hospitalization, Other)
  Sender: FDA-Public Use
  Company Number: PHHY2016LB176956

PATIENT
  Sex: Male

DRUGS (4)
  1. ENTRESTO [Suspect]
     Active Substance: SACUBITRIL\VALSARTAN
     Indication: CARDIAC FAILURE
     Dosage: 50 MG, BID
     Route: 048
     Dates: start: 20160527, end: 20160608
  2. ENTRESTO [Suspect]
     Active Substance: SACUBITRIL\VALSARTAN
     Dosage: 100 MG, BID
     Route: 048
     Dates: start: 20160609, end: 20160623
  3. ENTRESTO [Suspect]
     Active Substance: SACUBITRIL\VALSARTAN
     Dosage: 50 MG TO 100 MG, BID
     Route: 048
     Dates: start: 201701
  4. ENTRESTO [Suspect]
     Active Substance: SACUBITRIL\VALSARTAN
     Dosage: 200 MG, BID
     Route: 048
     Dates: start: 20160624, end: 201612

REACTIONS (10)
  - Malaise [Unknown]
  - Weight decreased [Unknown]
  - Influenza [Recovered/Resolved]
  - Gallbladder disorder [Recovering/Resolving]
  - Blood pressure inadequately controlled [Unknown]
  - Obesity [Unknown]
  - Hypotension [Not Recovered/Not Resolved]
  - Bronchitis [Recovered/Resolved]
  - Iron deficiency anaemia [Recovered/Resolved]
  - Incorrect dose administered [Unknown]
